FAERS Safety Report 9631251 (Version 2)
Quarter: 2013Q4

REPORT INFORMATION
  Report Type: Spontaneous
  Country: US (occurrence: US)
  Receive Date: 20131018
  Receipt Date: 20131018
  Transmission Date: 20140711
  Serious: Yes (Hospitalization)
  Sender: FDA-Public Use
  Company Number: US-CELGENEUS-163-POMAL-13081830

PATIENT
  Age: 69 Year
  Sex: Male
  Weight: 90.35 kg

DRUGS (43)
  1. POMALYST [Suspect]
     Indication: PLASMA CELL MYELOMA
     Dosage: 2 MILLIGRAM
     Route: 048
     Dates: start: 20130611, end: 20130911
  2. NEUPOGEN [Concomitant]
     Indication: PRODUCT USED FOR UNKNOWN INDICATION
     Route: 058
     Dates: start: 20121114, end: 20121115
  3. NEUPOGEN [Concomitant]
     Route: 058
     Dates: start: 20130628, end: 20130701
  4. NEUPOGEN [Concomitant]
     Route: 058
     Dates: start: 20130703, end: 20130708
  5. NEUPOGEN [Concomitant]
     Route: 058
     Dates: start: 20130802, end: 20130802
  6. NEUPOGEN [Concomitant]
     Route: 058
     Dates: start: 20130805, end: 20130805
  7. NEUPOGEN [Concomitant]
     Route: 058
     Dates: start: 20130806, end: 20130812
  8. NEUPOGEN [Concomitant]
     Dosage: 480 MICROGRAM
     Route: 058
     Dates: start: 20130802
  9. NEUPOGEN [Concomitant]
     Dosage: 480 MICROGRAM
     Route: 058
     Dates: start: 20130806
  10. ROCEPHIN [Concomitant]
     Indication: PRODUCT USED FOR UNKNOWN INDICATION
     Route: 041
     Dates: start: 20130115, end: 20130115
  11. ROCEPHIN [Concomitant]
     Route: 041
     Dates: start: 20130624, end: 20130624
  12. TREANDA [Concomitant]
     Indication: PRODUCT USED FOR UNKNOWN INDICATION
     Dosage: 90 MILLIGRAM/SQ. METER
     Route: 065
     Dates: start: 20130305, end: 20130326
  13. TREANDA [Concomitant]
     Dosage: 90 MILLIGRAM/SQ. METER
     Route: 065
     Dates: start: 20130409, end: 20130410
  14. PROCRIT [Concomitant]
     Indication: PRODUCT USED FOR UNKNOWN INDICATION
     Route: 058
     Dates: start: 20130319, end: 20130326
  15. PROCRIT [Concomitant]
     Route: 058
     Dates: start: 20130405, end: 20130502
  16. PROCRIT [Concomitant]
     Route: 058
     Dates: start: 20130524, end: 20130614
  17. PROCRIT [Concomitant]
     Route: 058
     Dates: start: 20130709, end: 20130710
  18. PROCRIT [Concomitant]
     Route: 058
     Dates: start: 20130716
  19. VELCADE [Concomitant]
     Indication: PRODUCT USED FOR UNKNOWN INDICATION
     Route: 058
     Dates: start: 20130430, end: 20130604
  20. CYTOXAN [Concomitant]
     Indication: PRODUCT USED FOR UNKNOWN INDICATION
     Route: 041
     Dates: start: 20130430, end: 20130604
  21. DECADRON [Concomitant]
     Indication: PRODUCT USED FOR UNKNOWN INDICATION
     Route: 041
     Dates: start: 20121002
  22. DECADRON [Concomitant]
     Route: 041
     Dates: start: 20130611
  23. DOXIL [Concomitant]
     Indication: PRODUCT USED FOR UNKNOWN INDICATION
     Route: 041
     Dates: start: 20130611
  24. ACYCLOVIR [Concomitant]
     Indication: PRODUCT USED FOR UNKNOWN INDICATION
     Dosage: 800 MILLIGRAM
     Route: 048
     Dates: start: 20130528
  25. CELEBREX [Concomitant]
     Indication: PRODUCT USED FOR UNKNOWN INDICATION
     Dosage: 100 MILLIGRAM
     Route: 048
     Dates: start: 20121002
  26. CELEBREX [Concomitant]
     Dosage: 100 MILLIGRAM
     Route: 048
     Dates: start: 20121129
  27. CELEBREX [Concomitant]
     Dosage: 100 MILLIGRAM
     Route: 048
     Dates: start: 20130225
  28. CELEBREX [Concomitant]
     Dosage: 100 MILLIGRAM
     Route: 048
     Dates: start: 20130424
  29. CELEBREX [Concomitant]
     Dosage: 100 MILLIGRAM
     Route: 048
     Dates: start: 20130702
  30. CIALIS [Concomitant]
     Indication: PRODUCT USED FOR UNKNOWN INDICATION
     Route: 048
     Dates: start: 20121002
  31. CIALIS [Concomitant]
     Route: 048
     Dates: start: 20130225
  32. EPISIL [Concomitant]
     Indication: PRODUCT USED FOR UNKNOWN INDICATION
     Route: 065
     Dates: start: 20130514
  33. FIRST-MARY^S MOUTHWASH [Concomitant]
     Indication: PRODUCT USED FOR UNKNOWN INDICATION
     Dosage: 1.2G-1.5G-0.06G
     Route: 065
     Dates: start: 20130425
  34. GLUTAMINE [Concomitant]
     Indication: PRODUCT USED FOR UNKNOWN INDICATION
     Route: 048
     Dates: start: 20130604
  35. MAGNESIUM [Concomitant]
     Indication: PRODUCT USED FOR UNKNOWN INDICATION
     Route: 048
     Dates: start: 20130409
  36. VALTREX [Concomitant]
     Indication: PRODUCT USED FOR UNKNOWN INDICATION
     Dosage: 500 MILLIGRAM
     Route: 048
     Dates: start: 20130806
  37. VITAMIN B12 [Concomitant]
     Indication: PRODUCT USED FOR UNKNOWN INDICATION
     Dosage: 110MG-0.5MG
     Route: 048
     Dates: start: 20121002
  38. ZITHROMAX [Concomitant]
     Indication: PRODUCT USED FOR UNKNOWN INDICATION
     Dosage: 500 MILLIGRAM
     Route: 048
     Dates: start: 20130805
  39. ZITHROMAX Z-PAK [Concomitant]
     Indication: PRODUCT USED FOR UNKNOWN INDICATION
     Route: 048
     Dates: start: 20130204
  40. ZITHROMAX Z-PAK [Concomitant]
     Route: 048
     Dates: start: 20130807
  41. ZOFRAN ODT [Concomitant]
     Indication: NAUSEA
     Route: 048
     Dates: start: 20130610
  42. ZYRTEC [Concomitant]
     Indication: NAUSEA
     Dosage: 10 MILLIGRAM
     Route: 048
     Dates: start: 20130528
  43. FLUIDS [Concomitant]
     Indication: RENAL IMPAIRMENT
     Route: 065
     Dates: start: 2013, end: 2013

REACTIONS (2)
  - Conjunctivitis [Recovered/Resolved]
  - Lobar pneumonia [Recovered/Resolved]
